FAERS Safety Report 5012786-6 (Version None)
Quarter: 2006Q2

REPORT INFORMATION
  Report Type: 
  Country: None (occurrence: None)
  Receive Date: 20060530
  Receipt Date: 20060302
  Transmission Date: 20061013
  Serious: Yes (Other)
  Sender: FDA-Public Use
  Company Number: US-BRISTOL-MYERS SQUIBB COMPANY-13302591

PATIENT
  Age: 70 Year
  Sex: Male

DRUGS (3)
  1. ERBITUX [Suspect]
     Dosage: LOADING DOSE.
     Route: 042
     Dates: start: 20060302, end: 20060302
  2. BENADRYL [Concomitant]
     Indication: PREMEDICATION
     Dates: start: 20060302, end: 20060302
  3. TYLENOL (GELTAB) [Concomitant]
     Indication: PREMEDICATION
     Dates: start: 20060302, end: 20060302

REACTIONS (1)
  - INFUSION RELATED REACTION [None]
